FAERS Safety Report 5385353-2 (Version None)
Quarter: 2007Q3

REPORT INFORMATION
  Report Type: 
  Country: None (occurrence: None)
  Receive Date: 20070712
  Receipt Date: 20070706
  Transmission Date: 20080115
  Serious: Yes (Hospitalization)
  Sender: FDA-Public Use
  Company Number: US-BAYER-200711714BWH

PATIENT
  Age: 83 Year
  Sex: Male

DRUGS (10)
  1. NEXAVAR [Suspect]
     Indication: METASTATIC RENAL CELL CARCINOMA
     Dosage: TOTAL DAILY DOSE: 800 MG  UNIT DOSE: 200 MG
     Route: 048
     Dates: start: 20070326, end: 20070619
  2. NEXAVAR [Suspect]
     Dosage: TOTAL DAILY DOSE: 800 MG  UNIT DOSE: 200 MG
     Route: 048
     Dates: start: 20070219, end: 20070301
  3. COUMADIN [Concomitant]
  4. NEXIUM [Concomitant]
     Route: 048
  5. FLOMAX [Concomitant]
     Route: 048
  6. ZOCOR [Concomitant]
     Route: 048
  7. FOLTEX [Concomitant]
     Route: 048
  8. TYLENOL [Concomitant]
  9. ASPIRIN [Concomitant]
     Route: 048
  10. MULTI-VITAMIN [Concomitant]
     Route: 048

REACTIONS (7)
  - CHEST PAIN [None]
  - ELECTROCARDIOGRAM CHANGE [None]
  - FATIGUE [None]
  - HYPERKALAEMIA [None]
  - HYPONATRAEMIA [None]
  - METABOLIC ACIDOSIS [None]
  - RASH [None]
